FAERS Safety Report 4679146-9 (Version None)
Quarter: 2005Q2

REPORT INFORMATION
  Report Type: 
  Country: None (occurrence: None)
  Receive Date: 20050527
  Receipt Date: 20050207
  Transmission Date: 20051028
  Serious: No
  Sender: FDA-Public Use
  Company Number: S05-USA-00712-01

PATIENT
  Age: 42 Year
  Sex: Female

DRUGS (5)
  1. CAMPRAL [Suspect]
     Indication: ALCOHOLISM
     Dosage: 666 MG TID PO
     Route: 048
     Dates: start: 20050202, end: 20050202
  2. TEGRETOL [Concomitant]
  3. TRAZODONE [Concomitant]
  4. ATENOLOL [Concomitant]
  5. MAXZIDE [Concomitant]

REACTIONS (4)
  - DIZZINESS [None]
  - DYSPNOEA [None]
  - HYPERHIDROSIS [None]
  - PANIC REACTION [None]
